FAERS Safety Report 17205306 (Version 1)
Quarter: 2019Q4

REPORT INFORMATION
  Report Type: Report from Study
  Country: None (occurrence: CA)
  Receive Date: 20191227
  Receipt Date: 20191227
  Transmission Date: 20200122
  Serious: Yes (Hospitalization)
  Sender: FDA-Public Use
  Company Number: CA-ABBVIE-19K-028-3209491-00

PATIENT
  Age: 43 Year
  Sex: Female

DRUGS (1)
  1. HUMIRA [Suspect]
     Active Substance: ADALIMUMAB
     Indication: CROHN^S DISEASE
     Route: 058
     Dates: start: 20090119

REACTIONS (16)
  - Lip swelling [Unknown]
  - Insomnia [Recovered/Resolved]
  - Injection site pain [Unknown]
  - Fatigue [Unknown]
  - Migraine [Unknown]
  - Sneezing [Unknown]
  - Pharyngeal swelling [Unknown]
  - Oral herpes [Unknown]
  - Psoriasis [Unknown]
  - Swelling face [Unknown]
  - Cellulitis [Unknown]
  - Throat irritation [Unknown]
  - Oral pruritus [Unknown]
  - Swollen tongue [Unknown]
  - Rhinorrhoea [Unknown]
  - Anal abscess [Unknown]

NARRATIVE: CASE EVENT DATE: 2016
